FAERS Safety Report 10198528 (Version 1)
Quarter: 2014Q2

REPORT INFORMATION
  Report Type: Spontaneous
  Country: US (occurrence: US)
  Receive Date: 20140527
  Receipt Date: 20140527
  Transmission Date: 20141212
  Serious: No
  Sender: FDA-Public Use
  Company Number: US-NOVEN-13US007320

PATIENT
  Age: 12 Year
  Sex: Male
  Weight: 91.61 kg

DRUGS (4)
  1. DAYTRANA [Suspect]
     Indication: ATTENTION DEFICIT/HYPERACTIVITY DISORDER
     Dosage: 20 MG FOR 9 HRS
     Route: 062
     Dates: start: 2008
  2. SEROQUEL [Concomitant]
  3. INTUNIV [Concomitant]
  4. TRAZODONE [Concomitant]

REACTIONS (3)
  - Disturbance in social behaviour [Not Recovered/Not Resolved]
  - Incorrect drug administration duration [Not Recovered/Not Resolved]
  - Product quality issue [Not Recovered/Not Resolved]
